FAERS Safety Report 17889567 (Version 2)
Quarter: 2020Q3

REPORT INFORMATION
  Report Type: Report from Study
  Country: US (occurrence: US)
  Receive Date: 20200612
  Receipt Date: 20200817
  Transmission Date: 20201103
  Serious: Yes (Hospitalization)
  Sender: FDA-Public Use
  Company Number: US-BIOGEN-2019BI00699124

PATIENT
  Age: 38 Year
  Sex: Female

DRUGS (6)
  1. TECFIDERA [Suspect]
     Active Substance: DIMETHYL FUMARATE
     Indication: MULTIPLE SCLEROSIS
     Dosage: X 7 DAYS
     Route: 050
     Dates: start: 20190213
  2. TECFIDERA [Suspect]
     Active Substance: DIMETHYL FUMARATE
     Route: 050
     Dates: start: 20190130, end: 20190206
  3. TECFIDERA [Suspect]
     Active Substance: DIMETHYL FUMARATE
     Route: 065
  4. TECFIDERA [Suspect]
     Active Substance: DIMETHYL FUMARATE
     Dosage: X 23 DAYS AFTER THE 120 MG DOSES
     Route: 050
     Dates: start: 20190220
  5. TECFIDERA [Suspect]
     Active Substance: DIMETHYL FUMARATE
     Route: 050
     Dates: start: 20190207, end: 202007
  6. TECFIDERA [Suspect]
     Active Substance: DIMETHYL FUMARATE
     Route: 050
     Dates: start: 20190214

REACTIONS (22)
  - Drug ineffective [Unknown]
  - Hot flush [Unknown]
  - Nerve compression [Unknown]
  - Eating disorder [Unknown]
  - Dysphagia [Unknown]
  - Vertigo [Not Recovered/Not Resolved]
  - Grunting [Not Recovered/Not Resolved]
  - Muscular weakness [Recovered/Resolved]
  - General physical health deterioration [Unknown]
  - Confusional state [Unknown]
  - Nausea [Recovered/Resolved]
  - Musculoskeletal disorder [Unknown]
  - Tremor [Not Recovered/Not Resolved]
  - Fatigue [Unknown]
  - Decreased appetite [Unknown]
  - Bone disorder [Unknown]
  - Amyotrophic lateral sclerosis [Not Recovered/Not Resolved]
  - Dizziness [Unknown]
  - Weight decreased [Unknown]
  - Multiple sclerosis relapse [Unknown]
  - Product dose omission issue [Unknown]
  - Flushing [Unknown]

NARRATIVE: CASE EVENT DATE: 20190214
